FAERS Safety Report 6177204-3 (Version None)
Quarter: 2009Q2

REPORT INFORMATION
  Report Type: 
  Country: None (occurrence: None)
  Receive Date: 20090430
  Receipt Date: 20090430
  Transmission Date: 20091009
  Serious: Yes (Death, Life-Threatening, Hospitalization, Other)
  Sender: FDA-Public Use
  Company Number: None

PATIENT
  Age: 71 Year
  Sex: Female
  Weight: 82 kg

DRUGS (2)
  1. CLOZAPINE [Suspect]
     Indication: PSYCHOTIC DISORDER
     Dosage: 0.5, 0.5, 1 DAILY 3X PO
     Route: 048
     Dates: start: 19990101, end: 20080906
  2. KEMADRIN [Suspect]
     Indication: EXTRAPYRAMIDAL DISORDER
     Dosage: 1,1,1 DAILY 3X PO
     Route: 048
     Dates: start: 20060101, end: 20080906

REACTIONS (3)
  - ANAEMIA [None]
  - COLON CANCER [None]
  - ILEUS [None]
